FAERS Safety Report 5136836-1 (Version None)
Quarter: 2006Q4

REPORT INFORMATION
  Report Type: 
  Country: None (occurrence: None)
  Receive Date: 20061023
  Receipt Date: 20061012
  Transmission Date: 20070319
  Serious: Yes (Hospitalization)
  Sender: FDA-Public Use
  Company Number: URSO-2006-027

PATIENT
  Age: 73 Year
  Sex: Female

DRUGS (1)
  1. URSODIOL [Suspect]
     Indication: BILIARY CIRRHOSIS PRIMARY
     Dosage: 600 MG PO
     Route: 048
     Dates: start: 20030618

REACTIONS (3)
  - GASTRIC CANCER [None]
  - HEPATIC LESION [None]
  - LYMPHADENOPATHY [None]
